FAERS Safety Report 9426543 (Version 2)
Quarter: 2013Q3

REPORT INFORMATION
  Report Type: Report from Study
  Country: US (occurrence: US)
  Receive Date: 20130730
  Receipt Date: 20130923
  Transmission Date: 20140515
  Serious: Yes (Other)
  Sender: FDA-Public Use
  Company Number: US-SANOFI-AVENTIS-2013SA074722

PATIENT
  Age: 43 Year
  Sex: Female
  Weight: 95 kg

DRUGS (6)
  1. AUBAGIO [Suspect]
     Indication: MULTIPLE SCLEROSIS
     Route: 048
     Dates: start: 201305
  2. AMITRIPTYLINE [Concomitant]
     Indication: PAIN
  3. AMITRIPTYLINE [Concomitant]
     Indication: DEPRESSION
  4. LIPITOR [Concomitant]
     Indication: BLOOD CHOLESTEROL
  5. BACLOFEN [Concomitant]
     Indication: PAIN IN EXTREMITY
  6. WELLBUTRIN [Concomitant]
     Indication: DEPRESSION

REACTIONS (6)
  - Multiple sclerosis relapse [Not Recovered/Not Resolved]
  - Diarrhoea [Unknown]
  - Nausea [Unknown]
  - Alopecia [Unknown]
  - Hypoaesthesia [Unknown]
  - Drug dose omission [Unknown]
